FAERS Safety Report 7312695-3 (Version None)
Quarter: 2011Q1

REPORT INFORMATION
  Report Type: 
  Country: None (occurrence: None)
  Receive Date: 20110224
  Receipt Date: 20110119
  Transmission Date: 20110831
  Serious: Yes (Other)
  Sender: FDA-Public Use
  Company Number: US-ASTRAZENECA-2010SE60127

PATIENT
  Age: 18689 Day
  Sex: Male
  Weight: 78 kg

DRUGS (6)
  1. CYMBALTA [Concomitant]
     Indication: FIBROMYALGIA
     Route: 048
     Dates: start: 20091216
  2. TRAZODONE HCL [Concomitant]
     Indication: SLEEP DISORDER
     Route: 048
  3. VIMOVO [Suspect]
     Indication: OSTEOARTHRITIS
     Dosage: 500/25.
     Route: 048
     Dates: start: 20100909, end: 20101010
  4. LIDODERM [Concomitant]
     Indication: OSTEOARTHRITIS
     Route: 061
     Dates: start: 20040322
  5. ZOCOR [Concomitant]
     Indication: BLOOD CHOLESTEROL INCREASED
     Route: 048
     Dates: start: 20071010
  6. TRAMADOL HCL [Concomitant]
     Indication: ARTHRALGIA
     Route: 048
     Dates: start: 20060524

REACTIONS (1)
  - PEPTIC ULCER [None]
